FAERS Safety Report 7430996-5 (Version None)
Quarter: 2011Q2

REPORT INFORMATION
  Report Type: 
  Country: None (occurrence: None)
  Receive Date: 20110421
  Receipt Date: 20110414
  Transmission Date: 20111010
  Serious: Yes (Life-Threatening, Other)
  Sender: FDA-Public Use
  Company Number: DE-ELI_LILLY_AND_COMPANY-DE201104004422

PATIENT
  Sex: Male

DRUGS (6)
  1. EUTHYROX [Concomitant]
  2. RAMIPRIL [Concomitant]
  3. DIGIMERCK [Concomitant]
  4. BYETTA [Suspect]
     Indication: TYPE 1 DIABETES MELLITUS
     Dosage: 10 UG, BID
     Route: 058
     Dates: start: 20090317
  5. METFORMIN HCL [Concomitant]
  6. SERTRALIN [Concomitant]

REACTIONS (3)
  - ASCITES [None]
  - PANCREATIC CARCINOMA [None]
  - OFF LABEL USE [None]
